FAERS Safety Report 18170084 (Version 1)
Quarter: 2020Q3

REPORT INFORMATION
  Report Type: Spontaneous
  Country: US (occurrence: US)
  Receive Date: 20200819
  Receipt Date: 20200819
  Transmission Date: 20201103
  Serious: No
  Sender: FDA-Public Use
  Company Number: None

PATIENT
  Age: 86 Year
  Sex: Male
  Weight: 78.47 kg

DRUGS (8)
  1. SIMVASTATIN. [Concomitant]
     Active Substance: SIMVASTATIN
  2. WARFARIN [Concomitant]
     Active Substance: WARFARIN
  3. DUTASTERIDE. [Concomitant]
     Active Substance: DUTASTERIDE
  4. LAMOTRIGINE. [Concomitant]
     Active Substance: LAMOTRIGINE
  5. CLONAZEPAM. [Concomitant]
     Active Substance: CLONAZEPAM
  6. ANAGRELIDE. [Suspect]
     Active Substance: ANAGRELIDE HYDROCHLORIDE
     Indication: ESSENTIAL THROMBOCYTHAEMIA
     Route: 048
     Dates: start: 20200624
  7. PIOGLITAZONE. [Concomitant]
     Active Substance: PIOGLITAZONE
  8. SYNTHROID [Concomitant]
     Active Substance: LEVOTHYROXINE SODIUM

REACTIONS (2)
  - Malaise [None]
  - Pruritus [None]

NARRATIVE: CASE EVENT DATE: 20200819
